FAERS Safety Report 14214661 (Version 2)
Quarter: 2017Q4

REPORT INFORMATION
  Report Type: Spontaneous
  Country: CL (occurrence: CL)
  Receive Date: 20171122
  Receipt Date: 20171228
  Transmission Date: 20180321
  Serious: Yes (Death, Other)
  Sender: FDA-Public Use
  Company Number: CL-NOVOPROD-573241

PATIENT
  Age: 2 Year
  Sex: Male
  Weight: 13 kg

DRUGS (5)
  1. FEIBA [Concomitant]
     Active Substance: ANTI-INHIBITOR COAGULANT COMPLEX
     Indication: FACTOR VIII DEFICIENCY
     Dosage: 1000 IU, TID (75 UI/KG)
     Route: 042
     Dates: start: 20171110
  2. NOVOSEVEN RT [Suspect]
     Active Substance: COAGULATION FACTOR VIIA RECOMBINANT HUMAN
     Indication: FACTOR VIII DEFICIENCY
     Dosage: 3MG
     Route: 042
  3. NOVOSEVEN RT [Suspect]
     Active Substance: COAGULATION FACTOR VIIA RECOMBINANT HUMAN
     Indication: ESCHAROTOMY
     Dosage: 3 MG
     Route: 042
     Dates: start: 20171109
  4. NOVOSEVEN RT [Suspect]
     Active Substance: COAGULATION FACTOR VIIA RECOMBINANT HUMAN
     Indication: CENTRAL VENOUS CATHETERISATION
     Dosage: 3 MG; 2 MG/2HOURS FOR TWO TIMES AND 2 MG/4 HOURS FOR 4 TIMES
     Route: 042
     Dates: end: 20171110
  5. NOVOSEVEN RT [Suspect]
     Active Substance: COAGULATION FACTOR VIIA RECOMBINANT HUMAN
     Indication: PROCEDURAL COMPLICATION

REACTIONS (2)
  - Acute myocardial infarction [Fatal]
  - Therapy non-responder [Unknown]
